FAERS Safety Report 5233007-5 (Version None)
Quarter: 2007Q1

REPORT INFORMATION
  Report Type: 
  Country: None (occurrence: None)
  Receive Date: 20070207
  Receipt Date: 20070127
  Transmission Date: 20070707
  Serious: Yes (Other)
  Sender: FDA-Public Use
  Company Number: US-PFIZER INC-2006147689

PATIENT
  Sex: Male
  Weight: 118.8 kg

DRUGS (2)
  1. VARENICLINE [Suspect]
     Indication: SMOKING CESSATION THERAPY
     Dates: start: 20060815, end: 20061101
  2. LEVOTHYROXINE SODIUM [Concomitant]

REACTIONS (1)
  - URINARY INCONTINENCE [None]
